FAERS Safety Report 8969877 (Version 1)
Quarter: 2012Q4

REPORT INFORMATION
  Report Type: 
  Country: US (occurrence: US)
  Receive Date: 20121217
  Receipt Date: 20121217
  Transmission Date: 20130627
  Serious: Yes (Hospitalization)
  Sender: FDA-Public Use
  Company Number: US-B.I. PHARMACEUTICALS,INC./RIDGEFIELD-2012-BI-01090BP

PATIENT
  Age: 77 Year
  Sex: Male
  Weight: 84 kg

DRUGS (5)
  1. PRADAXA [Suspect]
     Indication: ATRIAL FIBRILLATION
     Dosage: 300 mg
     Route: 048
     Dates: start: 20121122, end: 20121123
  2. COZAAR [Concomitant]
     Indication: HYPERTENSION
     Dosage: 75 mg
     Route: 048
  3. ATIVAN [Concomitant]
     Indication: SLEEP DISORDER
     Dosage: 1 mg
     Route: 048
  4. LASIX [Concomitant]
     Dosage: 20 mg
     Route: 048
  5. SIMVASTATIN [Concomitant]
     Indication: BLOOD CHOLESTEROL INCREASED
     Route: 048

REACTIONS (5)
  - Haemorrhage [Unknown]
  - Epistaxis [Recovered/Resolved]
  - Mouth haemorrhage [Recovered/Resolved]
  - Rectal haemorrhage [Recovered/Resolved]
  - Haemoptysis [Recovered/Resolved]
